FAERS Safety Report 17139338 (Version 1)
Quarter: 2019Q4

REPORT INFORMATION
  Report Type: Spontaneous
  Country: US (occurrence: US)
  Receive Date: 20191119
  Receipt Date: 20191119
  Transmission Date: 20200122
  Serious: No
  Sender: FDA-Public Use
  Company Number: None

PATIENT
  Age: 89 Year
  Sex: Male

DRUGS (4)
  1. GLIPIZIDE ER [Concomitant]
     Active Substance: GLIPIZIDE
  2. LISINOPRIL. [Concomitant]
     Active Substance: LISINOPRIL
  3. FLOMAX [Concomitant]
     Active Substance: TAMSULOSIN HYDROCHLORIDE
  4. MITOMYCIN INJ 40MG [Suspect]
     Active Substance: MITOMYCIN
     Indication: BLADDER CANCER
     Route: 043
     Dates: start: 201911

REACTIONS (1)
  - Off label use [None]

NARRATIVE: CASE EVENT DATE: 20191119
